FAERS Safety Report 11493176 (Version 1)
Quarter: 2015Q3

REPORT INFORMATION
  Report Type: Spontaneous
  Country: US (occurrence: US)
  Receive Date: 20150911
  Receipt Date: 20150911
  Transmission Date: 20151125
  Serious: No
  Sender: FDA-Public Use
  Company Number: US-B.I. PHARMACEUTICALS,INC./RIDGEFIELD-2015-BI-47685BP

PATIENT
  Age: 76 Year
  Sex: Male
  Weight: 82 kg

DRUGS (1)
  1. COMBIVENT [Suspect]
     Active Substance: ALBUTEROL SULFATE\IPRATROPIUM BROMIDE
     Indication: BRONCHITIS
     Dosage: STRENGTH: 20MCG/100 MCG; DAILY DOSE: 80MCG/400MCG
     Route: 055
     Dates: start: 201503

REACTIONS (2)
  - Drug ineffective [Recovered/Resolved]
  - Off label use [Unknown]

NARRATIVE: CASE EVENT DATE: 201503
